FAERS Safety Report 9617636 (Version 1)
Quarter: 2013Q4

REPORT INFORMATION
  Report Type: Spontaneous
  Country: US (occurrence: None)
  Receive Date: 20131009
  Receipt Date: 20131009
  Transmission Date: 20140711
  Serious: Yes (Death)
  Sender: FDA-Public Use
  Company Number: 2013AP008598

PATIENT
  Age: 31 Year
  Sex: Male

DRUGS (3)
  1. DILT-XR [Suspect]
     Route: 048
  2. MIRTAZAPINE TABLETS [Suspect]
  3. LISINOPRIL TABLETS [Suspect]
     Route: 048

REACTIONS (1)
  - Completed suicide [None]
